FAERS Safety Report 21754123 (Version 1)
Quarter: 2022Q4

REPORT INFORMATION
  Report Type: Other
  Country: ZA (occurrence: None)
  Receive Date: 20221220
  Receipt Date: 20221220
  Transmission Date: 20230113
  Serious: Yes (Other)
  Sender: FDA-Public Use
  Company Number: ZA-ROCHE-3233570

PATIENT
  Sex: Male

DRUGS (1)
  1. OCREVUS [Suspect]
     Active Substance: OCRELIZUMAB
     Indication: Multiple sclerosis
     Dosage: 600MG EVERY 6 MONTHS
     Route: 041
     Dates: start: 20220110

REACTIONS (7)
  - Multiple sclerosis [Unknown]
  - Intervertebral disc protrusion [Unknown]
  - Lordosis [Unknown]
  - Intervertebral disc degeneration [Unknown]
  - Radiculopathy [Unknown]
  - Osteochondrosis [Unknown]
  - Radiculopathy [Unknown]
